FAERS Safety Report 4481505-4 (Version None)
Quarter: 2004Q3

REPORT INFORMATION
  Report Type: 
  Country: None (occurrence: None)
  Receive Date: 20040923
  Receipt Date: 20040609
  Transmission Date: 20050211
  Serious: No
  Sender: FDA-Public Use
  Company Number: USA040669788

PATIENT
  Age: 87 Year
  Sex: Female
  Weight: 51 kg

DRUGS (10)
  1. FORTEO [Suspect]
     Indication: OSTEOPOROSIS
     Dates: start: 20040531
  2. PREVACID [Concomitant]
  3. ARICEPT [Concomitant]
  4. ISOSORBIDE [Concomitant]
  5. METOPROLOL SUCCINATE [Concomitant]
  6. CELEBREX [Concomitant]
  7. FOSAMAX [Concomitant]
  8. FUROSEMIDE [Concomitant]
  9. LIPITOR [Concomitant]
  10. QUININE [Concomitant]

REACTIONS (2)
  - CHEST PAIN [None]
  - DIZZINESS [None]
